FAERS Safety Report 15245448 (Version 1)
Quarter: 2018Q3

REPORT INFORMATION
  Report Type: Spontaneous
  Country: IE (occurrence: IE)
  Receive Date: 20180806
  Receipt Date: 20180806
  Transmission Date: 20181010
  Serious: Yes (Hospitalization)
  Sender: FDA-Public Use
  Company Number: PHHY2018IE062796

PATIENT
  Age: 81 Year
  Sex: Female

DRUGS (1)
  1. ACETYLSALICYLIC ACID [Suspect]
     Active Substance: ASPIRIN
     Indication: CEREBRAL INFARCTION
     Dosage: 300 MG, UNK
     Route: 065

REACTIONS (3)
  - Off label use [Unknown]
  - Cerebral microhaemorrhage [Unknown]
  - Hemiparesis [Unknown]
